FAERS Safety Report 5418322-4 (Version None)
Quarter: 2007Q3

REPORT INFORMATION
  Report Type: 
  Country: None (occurrence: None)
  Receive Date: 20070817
  Receipt Date: 20070810
  Transmission Date: 20080115
  Serious: Yes (Death)
  Sender: FDA-Public Use
  Company Number: US-KINGPHARMUSA00001-K200700917

PATIENT

DRUGS (6)
  1. AVINZA [Suspect]
     Indication: PAIN
     Dosage: 150 MG, QD
     Route: 048
     Dates: start: 20070711, end: 20070701
  2. SOMA [Concomitant]
     Dosage: 350 MG, UNK
     Route: 048
     Dates: end: 20070701
  3. LORTAB [Concomitant]
     Dosage: 10 MG, UNK
     Route: 048
     Dates: end: 20070701
  4. KLONOPIN [Concomitant]
     Dosage: 1 MG, BID
     Route: 048
     Dates: start: 20070711, end: 20070701
  5. INDERAL  /00030001/ [Concomitant]
     Indication: BLOOD PRESSURE
     Dosage: 120 MG, UNK
     Route: 048
     Dates: end: 20070701
  6. XANAX [Concomitant]
     Dosage: 2 MG, QD
     Dates: end: 20070711

REACTIONS (1)
  - DEATH [None]
